FAERS Safety Report 17051359 (Version 1)
Quarter: 2019Q4

REPORT INFORMATION
  Report Type: Report from Study
  Country: None (occurrence: BE)
  Receive Date: 20191120
  Receipt Date: 20191120
  Transmission Date: 20200122
  Serious: Yes (Hospitalization, Other)
  Sender: FDA-Public Use
  Company Number: BE-ABBVIE-19K-013-2957012-00

PATIENT
  Sex: Male

DRUGS (5)
  1. DUODOPA [Suspect]
     Active Substance: CARBIDOPA\LEVODOPA
     Indication: PARKINSON^S DISEASE
     Dosage: MD 7.5ML, CD 3ML/HR DURING 16HRS, ED 3ML
     Route: 050
     Dates: start: 20170828, end: 20170831
  2. DUODOPA [Suspect]
     Active Substance: CARBIDOPA\LEVODOPA
     Dosage: MD 9ML, CD 6ML/HR DURING 16HRS, ED 4ML, ND  3ML/HR DURING 8 HOURS
     Route: 050
     Dates: start: 20181212, end: 20191025
  3. DUODOPA [Suspect]
     Active Substance: CARBIDOPA\LEVODOPA
     Dosage: MD=5ML, CD=5ML/HR DURING 16HRS, ED=4ML, ND=2.5ML/HR DURING 8?HOURS
     Route: 050
     Dates: start: 20191025, end: 20191113
  4. DUODOPA [Suspect]
     Active Substance: CARBIDOPA\LEVODOPA
     Dosage: MD 9ML, CD 6ML/HR DURING 16HRS, ED 4ML, ND 3ML/HR DURING 8 HOURS
     Route: 050
     Dates: start: 20191113
  5. DUODOPA [Suspect]
     Active Substance: CARBIDOPA\LEVODOPA
     Dosage: DOSES CONTINUOUSLY MONITORED AND ADAPTED
     Route: 050
     Dates: start: 20170831, end: 20181212

REACTIONS (6)
  - Asthenia [Unknown]
  - Skin maceration [Not Recovered/Not Resolved]
  - Bedridden [Unknown]
  - Stoma site infection [Not Recovered/Not Resolved]
  - Device leakage [Recovered/Resolved]
  - Respiratory tract infection [Recovering/Resolving]
